FAERS Safety Report 23600929 (Version 1)
Quarter: 2024Q1

REPORT INFORMATION
  Report Type: Spontaneous
  Country: US (occurrence: None)
  Receive Date: 20240305
  Receipt Date: 20240305
  Transmission Date: 20240410
  Serious: Yes (Other)
  Sender: FDA-Public Use
  Company Number: None

PATIENT
  Age: 48 Year
  Sex: Female

DRUGS (1)
  1. VENOFER [Suspect]
     Active Substance: IRON SUCROSE
     Indication: Iron deficiency anaemia
     Route: 042
     Dates: start: 20240304, end: 20240304

REACTIONS (7)
  - Infusion related reaction [None]
  - Rash [None]
  - Paraesthesia [None]
  - Muscle tightness [None]
  - Presyncope [None]
  - Feeling abnormal [None]
  - Blood pressure decreased [None]

NARRATIVE: CASE EVENT DATE: 20240304
